FAERS Safety Report 5821173-X (Version None)
Quarter: 2008Q3

REPORT INFORMATION
  Report Type: 
  Country: None (occurrence: None)
  Receive Date: 20080722
  Receipt Date: 20080710
  Transmission Date: 20090109
  Serious: Yes (Other)
  Sender: FDA-Public Use
  Company Number: 2008018808

PATIENT

DRUGS (1)
  1. EMETROL (GLUCOSE, FRUCTOSE, PHOSPHORIC ACID) [Suspect]
     Indication: DRUG USE FOR UNKNOWN INDICATION
     Dosage: ONE TABLESPOON UNSPECIFIED; ORAL
     Route: 048

REACTIONS (1)
  - BLINDNESS [None]
